FAERS Safety Report 6855964-3 (Version None)
Quarter: 2010Q3

REPORT INFORMATION
  Report Type: 
  Country: None (occurrence: None)
  Receive Date: 20100719
  Receipt Date: 20100714
  Transmission Date: 20110219
  Serious: Yes (Death)
  Sender: FDA-Public Use
  Company Number: US-ASTRAZENECA-2010SE33178

PATIENT
  Age: 27 Year
  Sex: Female

DRUGS (1)
  1. SEROQUEL [Suspect]
     Dosage: A BOTTLE OF SEROQUEL
     Route: 048

REACTIONS (1)
  - COMPLETED SUICIDE [None]
